FAERS Safety Report 14024594 (Version 1)
Quarter: 2017Q3

REPORT INFORMATION
  Report Type: Spontaneous
  Country: US (occurrence: US)
  Receive Date: 20170928
  Receipt Date: 20170928
  Transmission Date: 20171128
  Serious: No
  Sender: FDA-Public Use
  Company Number: US-SA-2017SA015359

PATIENT
  Age: 22 Year
  Sex: Male

DRUGS (1)
  1. AUBAGIO [Suspect]
     Active Substance: TERIFLUNOMIDE
     Dosage: TAKE 1 TABLET (7 MG) BY MOUTH EVERYDAY FOR 1 MONTH, THEN START ONE 14 MG TABLET DAILY THEREAFTER
     Route: 048

REACTIONS (1)
  - Liver disorder [Unknown]
